FAERS Safety Report 4415316-2 (Version None)
Quarter: 2004Q3

REPORT INFORMATION
  Report Type: 
  Country: None (occurrence: None)
  Receive Date: 20040730
  Receipt Date: 20040720
  Transmission Date: 20050211
  Serious: Yes (Hospitalization)
  Sender: FDA-Public Use
  Company Number: S04-FRA-03263-01

PATIENT
  Age: 88 Year
  Sex: Female

DRUGS (7)
  1. CITALOPRAM HYDROBROMIDE [Suspect]
     Indication: DEPRESSION
     Dosage: 20 GM QD PO
     Route: 048
     Dates: start: 20030101
  2. ATORVASTATIN CALCIUM [Concomitant]
  3. VASTAREL (TRIMETAZIDINE) [Concomitant]
  4. DAFLON (DIOSMIN) [Concomitant]
  5. KARDEGIC (ACETYLSALICYLIC LYSINE) [Concomitant]
  6. TENORMIN [Concomitant]
  7. FERROUS SULFATE TAB [Concomitant]

REACTIONS (1)
  - LOSS OF CONSCIOUSNESS [None]
